FAERS Safety Report 8513374-7 (Version None)
Quarter: 2012Q3

REPORT INFORMATION
  Report Type: 
  Country: None (occurrence: None)
  Receive Date: 20120717
  Receipt Date: 20120712
  Transmission Date: 20120928
  Serious: Yes (Other)
  Sender: FDA-Public Use
  Company Number: ES-AMGEN-ESPSP2012041426

PATIENT
  Age: 59 Year
  Sex: Female

DRUGS (2)
  1. VITAMIN D                          /00318501/ [Concomitant]
  2. PROLIA [Suspect]
     Indication: OSTEOPOROSIS
     Dosage: UNK
     Dates: start: 20120328

REACTIONS (6)
  - PALPITATIONS [None]
  - STOMATITIS [None]
  - MALAISE [None]
  - VISION BLURRED [None]
  - HEART RATE ABNORMAL [None]
  - SUPRAVENTRICULAR EXTRASYSTOLES [None]
